FAERS Safety Report 5797700-8 (Version None)
Quarter: 2008Q3

REPORT INFORMATION
  Report Type: 
  Country: None (occurrence: None)
  Receive Date: 20080702
  Receipt Date: 20080625
  Transmission Date: 20090109
  Serious: Yes (Other)
  Sender: FDA-Public Use
  Company Number: CA-BRISTOL-MYERS SQUIBB COMPANY-14174072

PATIENT
  Age: 45 Year
  Sex: Female

DRUGS (6)
  1. ORENCIA [Suspect]
     Indication: RHEUMATOID ARTHRITIS
     Dosage: 18JUL07;01AUG;15AUG;12SEP;10OCT;07NOV;05DEC;02JAN08;30JAN;27FEB;26MAR;22APR08.THER.DURATION:Q4
     Route: 042
     Dates: start: 20070718
  2. METHOTREXATE [Concomitant]
  3. PREDNISONE [Concomitant]
  4. PREVACID [Concomitant]
  5. CALCIUM [Concomitant]
  6. VITAMIN D [Concomitant]

REACTIONS (1)
  - PNEUMONIA [None]
